FAERS Safety Report 10173440 (Version 1)
Quarter: 2014Q2

REPORT INFORMATION
  Report Type: Spontaneous
  Country: US (occurrence: US)
  Receive Date: 20140515
  Receipt Date: 20140515
  Transmission Date: 20141212
  Serious: No
  Sender: FDA-Public Use
  Company Number: US-BAUSCH-BL-2013-000590

PATIENT
  Sex: Male

DRUGS (2)
  1. BROMDAY 0.09% [Suspect]
     Indication: RETINAL VEIN OCCLUSION
     Route: 047
  2. DESMOPRESSIN [Concomitant]

REACTIONS (2)
  - Off label use [Unknown]
  - Gingival bleeding [Unknown]
